FAERS Safety Report 10270892 (Version 1)
Quarter: 2014Q3

REPORT INFORMATION
  Report Type: Spontaneous
  Country: US (occurrence: US)
  Receive Date: 20140701
  Receipt Date: 20140701
  Transmission Date: 20150326
  Serious: Yes (Hospitalization)
  Sender: FDA-Public Use
  Company Number: US-GLAXOSMITHKLINE-A1078573A

PATIENT
  Age: 81 Year
  Sex: Male

DRUGS (5)
  1. COREG [Suspect]
     Active Substance: CARVEDILOL
     Indication: HYPERTENSION
     Dosage: 3.125MG TWICE PER DAY
     Route: 048
  2. BABY ASPIRIN [Concomitant]
     Active Substance: ASPIRIN
  3. CHEMOTHERAPY [Suspect]
     Active Substance: UNSPECIFIED INGREDIENT
     Indication: MALIGNANT NEOPLASM PROGRESSION
     Route: 065
     Dates: start: 201404
  4. LOSARTAN [Concomitant]
     Active Substance: LOSARTAN
  5. VOTRIENT [Suspect]
     Active Substance: PAZOPANIB HYDROCHLORIDE
     Indication: RENAL CELL CARCINOMA
     Dosage: 600MG PER DAY
     Route: 048
     Dates: start: 201209, end: 20140415

REACTIONS (8)
  - Gastrooesophageal reflux disease [Recovering/Resolving]
  - Drug ineffective [Recovered/Resolved]
  - Malignant neoplasm progression [Not Recovered/Not Resolved]
  - Asthenia [Recovering/Resolving]
  - Pneumonia [Recovered/Resolved]
  - Diarrhoea [Recovered/Resolved]
  - Cough [Recovering/Resolving]
  - Nausea [Recovering/Resolving]

NARRATIVE: CASE EVENT DATE: 201209
